FAERS Safety Report 8192048-9 (Version None)
Quarter: 2012Q1

REPORT INFORMATION
  Report Type: 
  Country: None (occurrence: None)
  Receive Date: 20120307
  Receipt Date: 20120305
  Transmission Date: 20120608
  Serious: Yes (Life-Threatening, Other)
  Sender: FDA-Public Use
  Company Number: PHEH2012US003701

PATIENT
  Sex: Female
  Weight: 33.7 kg

DRUGS (6)
  1. FOLIC ACID [Concomitant]
     Dosage: 1.5 MG, QD
     Route: 048
  2. PENVEX [Concomitant]
     Indication: ASPLENIA
     Dosage: 250 MG, BID
     Route: 048
  3. EXJADE [Suspect]
     Indication: IRON OVERLOAD
     Dosage: 500 MG, DAILY
     Route: 048
     Dates: start: 20070523
  4. EXJADE [Suspect]
     Dosage: 500 MG, QD
     Route: 048
     Dates: start: 20120219
  5. EXJADE [Suspect]
     Dosage: 500 MG, QD
     Route: 048
     Dates: start: 20080208
  6. MIRALAX [Concomitant]
     Indication: CONSTIPATION
     Dosage: 8.5 G, QD
     Route: 048
     Dates: start: 20120209

REACTIONS (2)
  - HAEMATOCHEZIA [None]
  - HAEMORRHAGE [None]
